FAERS Safety Report 25483444 (Version 1)
Quarter: 2025Q2

REPORT INFORMATION
  Report Type: Spontaneous
  Country: CL (occurrence: CL)
  Receive Date: 20250626
  Receipt Date: 20250626
  Transmission Date: 20250716
  Serious: No
  Sender: PFIZER
  Company Number: CL-PFIZER INC-202500125186

PATIENT
  Age: 22 Year
  Sex: Female

DRUGS (1)
  1. ENBREL [Suspect]
     Active Substance: ETANERCEPT
     Dosage: 1 DF, WEEKLY

REACTIONS (3)
  - Device delivery system issue [Unknown]
  - Device physical property issue [Unknown]
  - Drug dose omission by device [Unknown]
